FAERS Safety Report 19545731 (Version 1)
Quarter: 2021Q3

REPORT INFORMATION
  Report Type: Spontaneous
  Country: GB (occurrence: GB)
  Receive Date: 20210714
  Receipt Date: 20210714
  Transmission Date: 20211014
  Serious: Yes (Hospitalization)
  Sender: FDA-Public Use
  Company Number: NVSC2021GB152476

PATIENT
  Age: 83 Year
  Sex: Female

DRUGS (28)
  1. MYCOPHENOLATE MOFETIL. [Suspect]
     Active Substance: MYCOPHENOLATE MOFETIL
     Indication: PRODUCT USED FOR UNKNOWN INDICATION
     Dosage: 250 MG, QD (250 MG CAPSULES TAKE ONE CAPSULE EVERY MORNING FOR 21 DAYS, THEN ONE CAPSULE TWICE A DAY
     Route: 065
     Dates: start: 20201209
  2. LORATADINE. [Concomitant]
     Active Substance: LORATADINE
     Indication: PRODUCT USED FOR UNKNOWN INDICATION
     Dosage: 5 ML (ORAL SOLUTION 5ML PO OD 120 ML )
     Route: 048
  3. MOMETASONE [Concomitant]
     Active Substance: MOMETASONE
     Indication: PRODUCT USED FOR UNKNOWN INDICATION
     Dosage: 0.1 % (SCALP LOTION APPLY TO THE AFFECTED AREA(S) EVERY MORNING)
     Route: 065
  4. OXYCONTIN [Concomitant]
     Active Substance: OXYCODONE HYDROCHLORIDE
     Indication: PRODUCT USED FOR UNKNOWN INDICATION
     Dosage: 10 MG, Q12H (MODIFIED?RELEASE TABLETS ONE TO BE TAKEN EVERY 12 HOURS 56 TABLET )
     Route: 065
  5. PERMETHRIN. [Concomitant]
     Active Substance: PERMETHRIN
     Indication: PRODUCT USED FOR UNKNOWN INDICATION
     Dosage: 5 % (CREAM APPLY TO THE AFFECTED AREA(S) AT NIGHT FOR 28 DAYS)
     Route: 065
  6. CLOBETASONE BUTYRATE [Concomitant]
     Active Substance: CLOBETASONE BUTYRATE
     Indication: PRODUCT USED FOR UNKNOWN INDICATION
     Dosage: 0.05 % (APPLY TO THE AFFECTED AREA(S) TWICE A DAY EVERY MORNING AND AT NIGHT)
     Route: 065
  7. HYDROMOL [Concomitant]
     Indication: PRODUCT USED FOR UNKNOWN INDICATION
     Dosage: UNK (APPLY TO THE AFFECTED AREA(S) FOUR TIMES A DAY)
     Route: 065
  8. ENSURE PLUS HN [Concomitant]
     Indication: PRODUCT USED FOR UNKNOWN INDICATION
     Dosage: MILKSHAKE STYLE LIQUID (FLAVOUR NOT SPECIFIED) ONE A DAY 22 X 200 ML
     Route: 065
  9. OILATUM [Concomitant]
     Indication: PRODUCT USED FOR UNKNOWN INDICATION
     Dosage: APPLY TO WET SKIN AND RINSE 150 GRAM (SHOWER GEL FRAGRANCE FREE)
     Route: 065
  10. ATENOLOL. [Concomitant]
     Active Substance: ATENOLOL
     Indication: PRODUCT USED FOR UNKNOWN INDICATION
     Dosage: 25 MG, QD (ONE TO BE TAKEN EACH DAY 28 TABLET )
     Route: 065
  11. CLOBETASONE [Concomitant]
     Active Substance: CLOBETASONE
     Indication: PRODUCT USED FOR UNKNOWN INDICATION
     Route: 065
  12. DERMOL [Concomitant]
     Active Substance: BENZALKONIUM CHLORIDE\CHLORHEXIDINE HYDROCHLORIDE\ISOPROPYL MYRISTATE\PARAFFIN
     Indication: PRODUCT USED FOR UNKNOWN INDICATION
     Dosage: 600 ML (ADD 15ML?30ML TO BATH WATER 600 ML )(EMOLLIENT APPLY TO THE AFFECTED AREA(S) WHEN NECESSARY)
     Route: 065
  13. LIQUID PARAFFIN [Concomitant]
     Active Substance: MINERAL OIL
     Indication: PRODUCT USED FOR UNKNOWN INDICATION
     Dosage: 1 DF, QID (APPLY TO THE AFFECTED AREA)
     Route: 065
  14. CLOBETASOL PROPIONATE. [Concomitant]
     Active Substance: CLOBETASOL PROPIONATE
     Indication: PRODUCT USED FOR UNKNOWN INDICATION
     Dosage: 0.05 % (APPLY TO THE AFFECTED AREA(S) TWICE A DAY EVERY MORNING AND AT NIGHT)
     Route: 065
  15. DESLORATADINE. [Concomitant]
     Active Substance: DESLORATADINE
     Indication: PRODUCT USED FOR UNKNOWN INDICATION
     Dosage: 5 MG (ONE TO BE TAKEN EACH DAY 30 TABLET? TAKING (NH CONFIRM ALONGSIDE LORATIDINE))
     Route: 065
  16. PARACETAMOL [Concomitant]
     Active Substance: ACETAMINOPHEN
     Indication: PRODUCT USED FOR UNKNOWN INDICATION
     Dosage: 500 MG (TWO TO BE TAKEN EVERY 4?6 HOURS UP TO FOUR TIMES A DAY PRN)
     Route: 065
  17. THIAMINE. [Concomitant]
     Active Substance: THIAMINE
     Indication: PRODUCT USED FOR UNKNOWN INDICATION
     Dosage: 100 MG, BID (ONE TO BE TAKEN TWICE A DAY 56 TABLET )
     Route: 065
  18. VENLAFAXINE [Concomitant]
     Active Substance: VENLAFAXINE HYDROCHLORIDE
     Indication: PRODUCT USED FOR UNKNOWN INDICATION
     Dosage: 75 MG (MODIFIED?RELEASE TABLETS ONE TO BE TAKEN EACH DAY 28 TABLET )
     Route: 065
  19. ZEROCREAM [Concomitant]
     Indication: PRODUCT USED FOR UNKNOWN INDICATION
     Dosage: 500 G, TID (THORNTON + ROSS LTD)
     Route: 065
  20. WHITE SOFT PARAFFIN [Concomitant]
     Active Substance: PARAFFIN
     Indication: PRODUCT USED FOR UNKNOWN INDICATION
     Dosage: 1 DF, QID (APPLY TO THE AFFECTED AREA)
     Route: 065
  21. CLOBETASOL [Concomitant]
     Active Substance: CLOBETASOL
     Indication: PRODUCT USED FOR UNKNOWN INDICATION
     Dosage: 0.05 % (CREAM APPLY THINLY ONCE OR TWICE A DAY 90 GRAM)
     Route: 065
  22. DUPILUMAB [Concomitant]
     Active Substance: DUPILUMAB
     Indication: PRODUCT USED FOR UNKNOWN INDICATION
     Dosage: 300 MG
     Route: 065
  23. MYCOPHENOLATE MOFETIL. [Suspect]
     Active Substance: MYCOPHENOLATE MOFETIL
     Dosage: 250 MG, BID (250 MG CAPSULES TAKE ONE CAPSULE EVERY MORNING FOR 21 DAYS, THEN ONE CAPSULE TWICE A DA
     Route: 065
  24. FERROUS SULFATE. [Concomitant]
     Active Substance: FERROUS SULFATE
     Indication: PRODUCT USED FOR UNKNOWN INDICATION
     Dosage: 200 MG, TID ( ONE TO BE TAKEN THREE TIMES A DAY 84 TABLET )
     Route: 065
  25. CLOPIDOGREL [Concomitant]
     Active Substance: CLOPIDOGREL BISULFATE
     Indication: PRODUCT USED FOR UNKNOWN INDICATION
     Dosage: 75 MG, QD (ONE TO BE TAKEN EACH DAY 28 TABLET )
     Route: 065
  26. MIRTAZAPINE. [Concomitant]
     Active Substance: MIRTAZAPINE
     Indication: PRODUCT USED FOR UNKNOWN INDICATION
     Dosage: 45 MG, QD (ONE TO BE TAKEN AT NIGHT 28 TABLET)
     Route: 065
  27. PREDNISOLONE. [Concomitant]
     Active Substance: PREDNISOLONE
     Indication: PRODUCT USED FOR UNKNOWN INDICATION
     Dosage: 5 MG (TAKE FOUR TABLETS EVERY MORNING FOR 5 DAYS, THEN THREE TABLETS EVERY MORNING FOR 5 DAYS, THEN
     Route: 065
  28. SIMVASTATIN. [Concomitant]
     Active Substance: SIMVASTATIN
     Indication: PRODUCT USED FOR UNKNOWN INDICATION
     Dosage: 40 MG (ONE TO BE TAKEN AT NIGHT 28 TABLET )
     Route: 065

REACTIONS (1)
  - Acute kidney injury [Unknown]
